FAERS Safety Report 8820189 (Version 3)
Quarter: 2012Q4

REPORT INFORMATION
  Report Type: 
  Country: DE (occurrence: DE)
  Receive Date: 20121002
  Receipt Date: 20121231
  Transmission Date: 20130627
  Serious: Yes (Hospitalization)
  Sender: FDA-Public Use
  Company Number: DE-BIOGENIDEC-2012BI039874

PATIENT
  Age: 54 Year
  Sex: Male

DRUGS (10)
  1. TYSABRI [Suspect]
     Indication: RELAPSING-REMITTING MULTIPLE SCLEROSIS
     Route: 042
     Dates: start: 2007, end: 201202
  2. METOHEXAL SUCC 95 MG [Concomitant]
     Indication: HYPERTENSION
     Route: 048
     Dates: start: 1990
  3. METOHEXAL SUCC 95 MG [Concomitant]
     Indication: HYPERTENSION
     Dates: start: 20120308
  4. AMLODIPINE [Concomitant]
     Indication: HYPERTENSION
     Route: 048
     Dates: start: 2000
  5. KEPPRA [Concomitant]
     Indication: PRODUCT USED FOR UNKNOWN INDICATION
     Route: 048
     Dates: start: 2008
  6. CITALOPRAM [Concomitant]
     Indication: DEPRESSED MOOD
     Route: 048
     Dates: start: 2008
  7. VALSARTAN [Concomitant]
     Indication: PRODUCT USED FOR UNKNOWN INDICATION
  8. PANTOZOL [Concomitant]
     Indication: PRODUCT USED FOR UNKNOWN INDICATION
  9. BACLOFEN [Concomitant]
     Indication: PRODUCT USED FOR UNKNOWN INDICATION
  10. GLUCORENOREM [Concomitant]
     Indication: PRODUCT USED FOR UNKNOWN INDICATION

REACTIONS (2)
  - Renal cell carcinoma stage I [Not Recovered/Not Resolved]
  - Urinary tract infection [Not Recovered/Not Resolved]
